FAERS Safety Report 6064788-9 (Version None)
Quarter: 2009Q1

REPORT INFORMATION
  Report Type: 
  Country: None (occurrence: None)
  Receive Date: 20090121
  Receipt Date: 20080711
  Transmission Date: 20090719
  Serious: Yes (Hospitalization, Other)
  Sender: FDA-Public Use
  Company Number: HQWYE068629JAN03

PATIENT
  Age: 52 Year
  Sex: Female
  Weight: 99.88 kg

DRUGS (1)
  1. PREMPRO [Suspect]
     Indication: HORMONE REPLACEMENT THERAPY
     Dosage: 1 TABLET DAILY, ORAL
     Route: 048
     Dates: start: 19980101, end: 20010101

REACTIONS (1)
  - CEREBROVASCULAR ACCIDENT [None]
